FAERS Safety Report 5879073-5 (Version None)
Quarter: 2008Q3

REPORT INFORMATION
  Report Type: 
  Country: None (occurrence: None)
  Receive Date: 20080910
  Receipt Date: 20080910
  Transmission Date: 20090109
  Serious: Yes (Death, Hospitalization)
  Sender: FDA-Public Use
  Company Number: None

PATIENT
  Age: 58 Year
  Sex: Male

DRUGS (5)
  1. SORIATANE [Suspect]
     Indication: PSORIASIS
     Dosage: 20 MG DAILY ORAL
     Route: 048
     Dates: start: 20070625, end: 20080227
  2. ATENOLOL [Concomitant]
  3. ALLOPURINOL [Concomitant]
  4. BETAMETHASONE [Concomitant]
  5. AMOXICILLIN AND CLAVULANATE POTASSIUM [Concomitant]

REACTIONS (14)
  - ABDOMINAL PAIN UPPER [None]
  - ANGIOPATHY [None]
  - ANOREXIA [None]
  - ASTHENIA [None]
  - CALCINOSIS [None]
  - DIVERTICULITIS [None]
  - ENDOSCOPY GASTROINTESTINAL ABNORMAL [None]
  - HEPATIC CIRRHOSIS [None]
  - HEPATIC FAILURE [None]
  - HEPATIC STEATOSIS [None]
  - PANCREATIC DISORDER [None]
  - PERITONEAL EFFUSION [None]
  - PYREXIA [None]
  - VARICES OESOPHAGEAL [None]
